FAERS Safety Report 25404092 (Version 2)
Quarter: 2025Q2

REPORT INFORMATION
  Report Type: Spontaneous
  Country: JP (occurrence: JP)
  Receive Date: 20250606
  Receipt Date: 20250613
  Transmission Date: 20250717
  Serious: Yes (Other)
  Sender: NOVO NORDISK
  Company Number: JP-NOVOPROD-1446195

PATIENT
  Age: 70 Year
  Sex: Female

DRUGS (3)
  1. RYBELSUS [Suspect]
     Active Substance: SEMAGLUTIDE
     Indication: Type 2 diabetes mellitus
     Route: 048
     Dates: start: 20221221, end: 20231006
  2. RYBELSUS [Suspect]
     Active Substance: SEMAGLUTIDE
     Route: 048
     Dates: start: 20240615, end: 20240629
  3. REPAGLINIDE [Concomitant]
     Active Substance: REPAGLINIDE
     Indication: Type 2 diabetes mellitus
     Route: 048

REACTIONS (1)
  - Primary biliary cholangitis [Recovering/Resolving]
